FAERS Safety Report 4825251-3 (Version None)
Quarter: 2005Q4

REPORT INFORMATION
  Report Type: 
  Country: None (occurrence: None)
  Receive Date: 20051109
  Receipt Date: 20051109
  Transmission Date: 20060501
  Serious: No
  Sender: FDA-Public Use
  Company Number: None

PATIENT
  Age: 78 Year
  Sex: Male

DRUGS (1)
  1. TERAZOSIN   5 MG [Suspect]
     Dosage: 1 AT BEDTIME
     Dates: start: 20051025, end: 20051104

REACTIONS (2)
  - INSOMNIA [None]
  - RASH [None]
